FAERS Safety Report 7031397-4 (Version None)
Quarter: 2010Q4

REPORT INFORMATION
  Report Type: 
  Country: None (occurrence: None)
  Receive Date: 20101006
  Receipt Date: 20100921
  Transmission Date: 20110411
  Serious: No
  Sender: FDA-Public Use
  Company Number: US-BAYER-201034500NA

PATIENT
  Age: 38 Year
  Sex: Male

DRUGS (1)
  1. MAGNEVIST [Suspect]
     Indication: NUCLEAR MAGNETIC RESONANCE IMAGING BRAIN
     Dosage: AS USED: 20 ML  UNIT DOSE: 100 ML
     Dates: start: 20100916, end: 20100916

REACTIONS (2)
  - ERYTHEMA [None]
  - PRURITUS [None]
